FAERS Safety Report 15700384 (Version 1)
Quarter: 2018Q4

REPORT INFORMATION
  Report Type: Spontaneous
  Country: US (occurrence: US)
  Receive Date: 20181207
  Receipt Date: 20181207
  Transmission Date: 20190205
  Serious: Yes (Other)
  Sender: FDA-Public Use
  Company Number: US-BAYER-2018-224533

PATIENT
  Age: 77 Year
  Sex: Male

DRUGS (2)
  1. ALEVE [Suspect]
     Active Substance: NAPROXEN SODIUM
     Indication: PRODUCT USED FOR UNKNOWN INDICATION
     Route: 058
  2. HUMIRA [Suspect]
     Active Substance: ADALIMUMAB
     Indication: RHEUMATOID ARTHRITIS
     Dosage: 40 MG IN 2 -2
     Route: 058
     Dates: start: 2016

REACTIONS (15)
  - Arthralgia [Unknown]
  - Dyspnoea exertional [Recovered/Resolved]
  - Drug effect incomplete [None]
  - Gastrointestinal ulcer haemorrhage [Unknown]
  - Pneumonia [Recovered/Resolved]
  - Pneumonia [Unknown]
  - Pneumonia [Recovered/Resolved]
  - Pain in extremity [Unknown]
  - Obliterative bronchiolitis [Recovering/Resolving]
  - Respiratory disorder [Recovering/Resolving]
  - Sensitivity to weather change [Not Recovered/Not Resolved]
  - Lower respiratory tract infection [Unknown]
  - Weight fluctuation [Not Recovered/Not Resolved]
  - Musculoskeletal stiffness [Not Recovered/Not Resolved]
  - Pruritus [Unknown]

NARRATIVE: CASE EVENT DATE: 2016
